FAERS Safety Report 4709028-5 (Version None)
Quarter: 2005Q3

REPORT INFORMATION
  Report Type: 
  Country: None (occurrence: None)
  Receive Date: 20050707
  Receipt Date: 20050620
  Transmission Date: 20060218
  Serious: Yes (Other)
  Sender: FDA-Public Use
  Company Number: TRP_0093_2005

PATIENT
  Age: 47 Year
  Sex: Female
  Weight: 101.1521 kg

DRUGS (7)
  1. RIBASPHERE [Suspect]
     Indication: HEPATITIS C
     Dosage: 3 CAP BID PO
     Route: 048
     Dates: start: 20041122
  2. PEGASYS [Suspect]
     Indication: HEPATITIS C
     Dosage: 180 MCG QWK SC
     Route: 058
     Dates: start: 20041122
  3. ALLOPURINOL [Concomitant]
  4. MICROZIDE [Concomitant]
  5. ACETAMINOPHEN [Concomitant]
  6. DIPHENHYDRAMINE [Concomitant]
  7. HYDROCHLOROTHIAZIDE [Concomitant]

REACTIONS (7)
  - ALOPECIA [None]
  - ASTHENIA [None]
  - DEPRESSION [None]
  - DIZZINESS POSTURAL [None]
  - FATIGUE [None]
  - INSOMNIA [None]
  - SOMNOLENCE [None]
